FAERS Safety Report 19202172 (Version 1)
Quarter: 2021Q2

REPORT INFORMATION
  Report Type: Spontaneous
  Country: US (occurrence: US)
  Receive Date: 20210430
  Receipt Date: 20210430
  Transmission Date: 20210717
  Serious: Yes (Hospitalization, Other)
  Sender: FDA-Public Use
  Company Number: US-TEVA-2021-US-1904630

PATIENT
  Age: 7 Decade
  Sex: Male

DRUGS (2)
  1. CISPLATIN. [Suspect]
     Active Substance: CISPLATIN
     Indication: SQUAMOUS CELL CARCINOMA OF HEAD AND NECK
     Route: 065
  2. KEYTRUDA [Suspect]
     Active Substance: PEMBROLIZUMAB
     Indication: SQUAMOUS CELL CARCINOMA OF HEAD AND NECK
     Dosage: PEMBROLIZUMAB AT A DOSE OF 200 MG, IN SIX INFUSIONS CONTINUED OVER THE COURSE OF 4 MONTHS.
     Route: 050

REACTIONS (4)
  - Drug ineffective [Unknown]
  - Glomerulonephritis rapidly progressive [Recovering/Resolving]
  - Gastroenteritis Escherichia coli [Unknown]
  - Enterocolitis infectious [Unknown]
